FAERS Safety Report 17398315 (Version 1)
Quarter: 2020Q1

REPORT INFORMATION
  Report Type: Spontaneous
  Country: US (occurrence: US)
  Receive Date: 20200210
  Receipt Date: 20200210
  Transmission Date: 20200409
  Serious: No
  Sender: FDA-Public Use
  Company Number: US-VAYAPHARMA-2018-US-003967

PATIENT
  Sex: Male

DRUGS (2)
  1. VAYARIN (NON-SPECIFIC) [Suspect]
     Active Substance: DOCONEXENT\ICOSAPENT\PHOSPHATIDYL SERINE
     Indication: ATTENTION DEFICIT/HYPERACTIVITY DISORDER
     Dosage: UNKNOWN
     Route: 048
  2. VYVANSE [Concomitant]
     Active Substance: LISDEXAMFETAMINE DIMESYLATE
     Dosage: A COUPLE OF TIMES PER WEEK
     Route: 065

REACTIONS (4)
  - Disturbance in attention [Unknown]
  - Insomnia [Unknown]
  - Mood swings [Unknown]
  - Increased appetite [Unknown]
